FAERS Safety Report 5040521-4 (Version None)
Quarter: 2006Q2

REPORT INFORMATION
  Report Type: 
  Country: None (occurrence: None)
  Receive Date: 20060630
  Receipt Date: 20060622
  Transmission Date: 20061013
  Serious: Yes (Hospitalization, Other)
  Sender: FDA-Public Use
  Company Number: US-ABBOTT-06P-163-0336707-00

PATIENT
  Sex: Female
  Weight: 54.5 kg

DRUGS (7)
  1. DILAUDID [Suspect]
     Indication: DRUG USE FOR UNKNOWN INDICATION
     Route: 048
  2. ALPRAZOLAM [Suspect]
     Indication: DRUG USE FOR UNKNOWN INDICATION
     Route: 048
  3. OXYCOCET [Suspect]
     Indication: DRUG USE FOR UNKNOWN INDICATION
     Route: 048
  4. OXYCOCET [Suspect]
     Route: 048
  5. PROGESTERONE [Suspect]
     Indication: AMENORRHOEA
     Route: 048
     Dates: start: 20060601
  6. PROGESTERONE [Suspect]
     Indication: UTERINE LEIOMYOMA
     Route: 048
     Dates: start: 20020101
  7. PROGESTERONE [Suspect]
     Indication: HAEMORRHAGE

REACTIONS (3)
  - DIZZINESS [None]
  - DRUG INEFFECTIVE [None]
  - LOSS OF CONSCIOUSNESS [None]
